FAERS Safety Report 4931565-9 (Version None)
Quarter: 2006Q1

REPORT INFORMATION
  Report Type: 
  Country: None (occurrence: None)
  Receive Date: 20060303
  Receipt Date: 20060220
  Transmission Date: 20060701
  Serious: Yes (Other)
  Sender: FDA-Public Use
  Company Number: PHEH2006US02364

PATIENT
  Age: 62 Year
  Sex: Male

DRUGS (1)
  1. LOTREL [Suspect]
     Dosage: UNK, UNK
     Route: 048
     Dates: start: 20030201

REACTIONS (7)
  - COUGH [None]
  - DEPRESSION [None]
  - ERECTILE DYSFUNCTION [None]
  - FORMICATION [None]
  - MEMORY IMPAIRMENT [None]
  - NERVOUSNESS [None]
  - TREMOR [None]
